FAERS Safety Report 6886215-1 (Version None)
Quarter: 2010Q3

REPORT INFORMATION
  Report Type: 
  Country: None (occurrence: None)
  Receive Date: 20100729
  Receipt Date: 20090327
  Transmission Date: 20110219
  Serious: Yes (Other)
  Sender: FDA-Public Use
  Company Number: US-PFIZER INC-2009171861

PATIENT
  Sex: Female
  Weight: 56.236 kg

DRUGS (2)
  1. CELEBREX [Suspect]
     Indication: NEURALGIA
     Dosage: 100 MG, 1X/DAY
     Dates: start: 20090206, end: 20090201
  2. MAXZIDE [Concomitant]
     Dosage: UNK

REACTIONS (2)
  - BLOOD PRESSURE INADEQUATELY CONTROLLED [None]
  - DIZZINESS [None]
